FAERS Safety Report 8438715-0 (Version None)
Quarter: 2012Q2

REPORT INFORMATION
  Report Type: 
  Country: None (occurrence: None)
  Receive Date: 20120608
  Receipt Date: 20120522
  Transmission Date: 20120825
  Serious: Yes (Other)
  Sender: FDA-Public Use
  Company Number: 2012AP001150

PATIENT
  Age: 62 Year
  Sex: Male

DRUGS (5)
  1. LAMIVUDINE [Concomitant]
  2. LAMIVUDINE (EPIVIR HBV) [Suspect]
     Indication: HIV INFECTION
     Dosage: 1 TAB, QD, PO
     Route: 048
     Dates: start: 20120419, end: 20120424
  3. TENOFOVIR DISOPROXIL FUMARATE [Concomitant]
  4. NEVIRAPINE [Concomitant]
  5. FUMARATE [Concomitant]

REACTIONS (1)
  - BLOOD PRESSURE INCREASED [None]
